FAERS Safety Report 20396531 (Version 2)
Quarter: 2022Q1

REPORT INFORMATION
  Report Type: Spontaneous
  Country: US (occurrence: US)
  Receive Date: 20220130
  Receipt Date: 20220201
  Transmission Date: 20220423
  Serious: No
  Sender: FDA-Public Use
  Company Number: US-ABBVIE-21K-163-3804185-00

PATIENT
  Age: 65 Year
  Sex: Male

DRUGS (6)
  1. HUMIRA [Suspect]
     Active Substance: ADALIMUMAB
     Indication: Ankylosing spondylitis
     Route: 058
     Dates: start: 2020
  2. OXYCODONE [Concomitant]
     Active Substance: OXYCODONE
     Indication: Pain
  3. GABAPENTIN [Concomitant]
     Active Substance: GABAPENTIN
     Indication: Pain
  4. OMEPRAZOLE [Concomitant]
     Active Substance: OMEPRAZOLE
     Indication: Gastrooesophageal reflux disease
  5. METHOCARBAMOL [Concomitant]
     Active Substance: METHOCARBAMOL
     Indication: Muscle relaxant therapy
  6. MELOXICAM [Concomitant]
     Active Substance: MELOXICAM
     Indication: Ankylosing spondylitis

REACTIONS (6)
  - Injection site laceration [Recovered/Resolved]
  - Injection site mass [Not Recovered/Not Resolved]
  - Injection site bruising [Not Recovered/Not Resolved]
  - Injection site haemorrhage [Recovered/Resolved]
  - Device issue [Recovered/Resolved]
  - Incorrect dose administered [Recovered/Resolved]

NARRATIVE: CASE EVENT DATE: 20210224
